FAERS Safety Report 8051950-9 (Version None)
Quarter: 2012Q1

REPORT INFORMATION
  Report Type: 
  Country: None (occurrence: None)
  Receive Date: 20120111
  Receipt Date: 20111118
  Transmission Date: 20120608
  Serious: Yes (Hospitalization)
  Sender: FDA-Public Use
  Company Number: BE-024449

PATIENT
  Age: 74 Year
  Sex: Male
  Weight: 110 kg

DRUGS (2)
  1. (CHLORAMBUCIL) [Suspect]
     Indication: CHRONIC LYMPHOCYTIC LEUKAEMIA
     Dosage: 10 MGM2 DAYS 1-7 EVERY 28 DAYS, ORAL
     Route: 048
     Dates: start: 20101122
  2. OFATUMUMAB [Suspect]
     Indication: CHRONIC LYMPHOCYTIC LEUKAEMIA
     Dosage: 300 MG AT DAY 1, 1000MG AT 8 FOLLOWED BY 1000MG EVERY 28 DAYS, INTRAVENOUS (NOT OTHERWISE SPECIFIED)
     Route: 042
     Dates: start: 20101122

REACTIONS (4)
  - GASTROINTESTINAL HAEMORRHAGE [None]
  - ANAEMIA [None]
  - POLYP COLORECTAL [None]
  - GASTROINTESTINAL ULCER [None]
